FAERS Safety Report 10125452 (Version 2)
Quarter: 2014Q2

REPORT INFORMATION
  Report Type: Spontaneous
  Country: US (occurrence: US)
  Receive Date: 20140425
  Receipt Date: 20140430
  Transmission Date: 20141212
  Serious: No
  Sender: FDA-Public Use
  Company Number: US-009507513-1404USA011928

PATIENT
  Age: 54 Year
  Sex: Male

DRUGS (1)
  1. PEGINTRON [Suspect]
     Dosage: REDIPEN, 150 MICROGRAM, INJECTION, 1 STANDARD DOSE OF 1, ONCE WEEKLY
     Dates: start: 20140326

REACTIONS (7)
  - Anger [Unknown]
  - Aggression [Unknown]
  - Drug dose omission [Unknown]
  - Accidental exposure to product [Unknown]
  - Product quality issue [Unknown]
  - Drug dose omission [Unknown]
  - Device malfunction [Unknown]
